FAERS Safety Report 7557207-4 (Version None)
Quarter: 2011Q2

REPORT INFORMATION
  Report Type: 
  Country: None (occurrence: None)
  Receive Date: 20110620
  Receipt Date: 20100806
  Transmission Date: 20111010
  Serious: No
  Sender: FDA-Public Use
  Company Number: US-MYLANLABS-2010S1014410

PATIENT
  Age: 71 Year
  Sex: Male
  Weight: 83.92 kg

DRUGS (6)
  1. COUMADIN [Concomitant]
  2. PERFOROMIST [Suspect]
     Indication: DYSPNOEA
     Route: 055
     Dates: start: 20100201, end: 20100805
  3. PROSTATE MEDICATION [Concomitant]
  4. FERROUS SULFATE TAB [Concomitant]
  5. STOOL SOFTENER [Concomitant]
  6. BLOOD PRESSURE MEDICATION [Concomitant]

REACTIONS (4)
  - DRY MOUTH [None]
  - NIPPLE PAIN [None]
  - INSOMNIA [None]
  - NIPPLE SWELLING [None]
